FAERS Safety Report 6526846-1 (Version None)
Quarter: 2010Q1

REPORT INFORMATION
  Report Type: 
  Country: None (occurrence: None)
  Receive Date: 20100105
  Receipt Date: 20091224
  Transmission Date: 20100710
  Serious: Yes (Other)
  Sender: FDA-Public Use
  Company Number: JP-BAYER-200915294BYL

PATIENT
  Age: 32 Year
  Sex: Female
  Weight: 56 kg

DRUGS (1)
  1. NEXAVAR [Suspect]
     Indication: RENAL CELL CARCINOMA
     Dosage: UNIT DOSE: 200 MG
     Route: 048
     Dates: start: 20080617, end: 20080627

REACTIONS (2)
  - RASH GENERALISED [None]
  - RESPIRATORY DISORDER [None]
